FAERS Safety Report 5409214-5 (Version None)
Quarter: 2007Q3

REPORT INFORMATION
  Report Type: 
  Country: None (occurrence: None)
  Receive Date: 20070807
  Receipt Date: 20070807
  Transmission Date: 20080115
  Serious: No
  Sender: FDA-Public Use
  Company Number: None

PATIENT
  Age: 73 Year
  Sex: Male
  Weight: 84.369 kg

DRUGS (6)
  1. CYMBALTA [Suspect]
     Indication: ANXIETY DISORDER
     Dosage: 60MG DAILY
  2. COZAAR [Concomitant]
  3. ZIAC [Concomitant]
  4. HYDROCHLOROTHIAZIDE [Concomitant]
  5. ASPIRIN [Concomitant]
  6. LIPITOR [Concomitant]

REACTIONS (1)
  - HYPERTENSION [None]
